FAERS Safety Report 4831153-9 (Version None)
Quarter: 2005Q4

REPORT INFORMATION
  Report Type: 
  Country: None (occurrence: None)
  Receive Date: 20051114
  Receipt Date: 20050813
  Transmission Date: 20060501
  Serious: Yes (Other)
  Sender: FDA-Public Use
  Company Number: 2005BH002720

PATIENT
  Age: 58 Year
  Sex: Male
  Weight: 115 kg

DRUGS (3)
  1. DIANEAL [Suspect]
     Indication: COMPLICATIONS OF TRANSPLANTED KIDNEY
     Dates: start: 20031201
  2. EXTRANEAL [Suspect]
     Indication: COMPLICATIONS OF TRANSPLANTED KIDNEY
     Dosage: EVERY DAY IP
     Route: 033
     Dates: start: 20031201
  3. HEPARIN [Concomitant]

REACTIONS (3)
  - MEDICAL DEVICE COMPLICATION [None]
  - MORGANELLA INFECTION [None]
  - PERITONITIS [None]
